FAERS Safety Report 5141619-2 (Version None)
Quarter: 2006Q4

REPORT INFORMATION
  Report Type: 
  Country: None (occurrence: None)
  Receive Date: 20061026
  Receipt Date: 20061011
  Transmission Date: 20070319
  Serious: Yes (Other)
  Sender: FDA-Public Use
  Company Number: 2006125502

PATIENT
  Age: 50 Year
  Sex: Male

DRUGS (1)
  1. BENADRYL [Suspect]
     Dosage: ORAL
     Route: 048
     Dates: end: 20061001

REACTIONS (1)
  - TREMOR [None]
